FAERS Safety Report 10209956 (Version 1)
Quarter: 2014Q2

REPORT INFORMATION
  Report Type: Spontaneous
  Country: ES (occurrence: ES)
  Receive Date: 20140602
  Receipt Date: 20140602
  Transmission Date: 20141212
  Serious: Yes (Other)
  Sender: FDA-Public Use
  Company Number: ES-RANBAXY-2014RR-81719

PATIENT
  Age: 65 Year
  Sex: Female

DRUGS (3)
  1. IBUPROFEN [Suspect]
     Indication: RHEUMATOID ARTHRITIS
     Dosage: 6 MG/8H
     Route: 065
  2. METHOTREXATE [Interacting]
     Indication: RHEUMATOID ARTHRITIS
     Dosage: 20 MG, DAILY
     Route: 065
  3. PREDNISONE [Concomitant]
     Indication: RHEUMATOID ARTHRITIS
     Dosage: 10 MG, DAILY
     Route: 065

REACTIONS (9)
  - Toxicity to various agents [Recovered/Resolved]
  - Pyrexia [Unknown]
  - Mucosal inflammation [Recovered/Resolved]
  - Oedema [Recovered/Resolved]
  - Skin ulcer [Recovered/Resolved]
  - Pancytopenia [Recovered/Resolved]
  - Drug administration error [Recovered/Resolved]
  - Overdose [Recovered/Resolved]
  - Drug interaction [Recovered/Resolved]
